FAERS Safety Report 10098276 (Version 1)
Quarter: 2014Q2

REPORT INFORMATION
  Report Type: Report from Study
  Country: ZA (occurrence: ZA)
  Receive Date: 20140423
  Receipt Date: 20140423
  Transmission Date: 20141212
  Serious: Yes (Other)
  Sender: FDA-Public Use
  Company Number: ZA-ROCHE-1388866

PATIENT
  Sex: Female

DRUGS (2)
  1. MABTHERA [Suspect]
     Indication: RHEUMATOID ARTHRITIS
     Dosage: 500MG X4 VIALS EVERY 6 MONTHS
     Route: 042
     Dates: start: 20120717, end: 201402
  2. METHOTREXATE [Concomitant]

REACTIONS (3)
  - Drug ineffective [Unknown]
  - Synovitis [Not Recovered/Not Resolved]
  - Joint destruction [Unknown]
